FAERS Safety Report 9336650 (Version 2)
Quarter: 2013Q4

REPORT INFORMATION
  Report Type: Spontaneous
  Country: DK (occurrence: DK)
  Receive Date: 20130607
  Receipt Date: 20131210
  Transmission Date: 20140711
  Serious: Yes (Other)
  Sender: FDA-Public Use
  Company Number: PHHY2013DK057340

PATIENT
  Age: 40 Year
  Sex: Female

DRUGS (4)
  1. ZOMETA [Suspect]
     Indication: METASTASES TO BONE
     Dosage: 4 MG, PER 100ML
     Route: 042
     Dates: start: 200603, end: 201301
  2. SIMVASTATIN [Concomitant]
     Dosage: 40 MG, QD
     Route: 048
  3. ARIMIDEX [Concomitant]
     Dosage: 1 MG, QD
     Route: 048
  4. HERCEPTIN [Concomitant]
     Dosage: 500 MG
     Route: 042

REACTIONS (5)
  - Osteonecrosis of jaw [Recovered/Resolved with Sequelae]
  - Bone lesion [Unknown]
  - Pain in jaw [Unknown]
  - Erythema [Unknown]
  - Swelling [Unknown]
